FAERS Safety Report 7595648-X (Version None)
Quarter: 2011Q3

REPORT INFORMATION
  Report Type: 
  Country: None (occurrence: None)
  Receive Date: 20110707
  Receipt Date: 20110630
  Transmission Date: 20111222
  Serious: Yes (Hospitalization)
  Sender: FDA-Public Use
  Company Number: PHHY2011SE58663

PATIENT
  Sex: Female

DRUGS (8)
  1. LAKTUS ALTERNOVA [Concomitant]
     Dosage: UNK
  2. ASPIRIN [Concomitant]
     Dosage: UNK
  3. METHOTREXAT ^EBEWE^ [Concomitant]
     Dosage: UNK
  4. ZOPICLON MYLAN [Concomitant]
     Dosage: UNK
  5. ACETAMINOPHEN [Concomitant]
     Dosage: UNK
  6. CALCICHEW-D3 [Concomitant]
     Dosage: UNK
  7. METOPROLOL SANDOZ [Suspect]
     Indication: ESSENTIAL HYPERTENSION
     Dosage: 25 MG DAILY
     Route: 048
     Dates: start: 20110317, end: 20110423
  8. ENALAPRIL MALEATE [Concomitant]
     Dosage: UNK

REACTIONS (3)
  - FALL [None]
  - INJURY [None]
  - BRADYCARDIA [None]
